FAERS Safety Report 8595335-5 (Version None)
Quarter: 2012Q3

REPORT INFORMATION
  Report Type: 
  Country: None (occurrence: None)
  Receive Date: 20120815
  Receipt Date: 20120810
  Transmission Date: 20120928
  Serious: Yes (Other)
  Sender: FDA-Public Use
  Company Number: PHEH2012US006048

PATIENT
  Sex: Male

DRUGS (2)
  1. EXJADE [Suspect]
     Indication: IRON OVERLOAD
     Dosage: 500 MG, TID
     Route: 048
     Dates: start: 20080822
  2. EXJADE [Suspect]
     Dosage: 500 MG, TID
     Route: 048
     Dates: end: 20120807

REACTIONS (9)
  - PYREXIA [None]
  - CHROMATURIA [None]
  - VOMITING [None]
  - DIARRHOEA [None]
  - ABDOMINAL PAIN UPPER [None]
  - NAUSEA [None]
  - JAUNDICE [None]
  - BLOOD IRON INCREASED [None]
  - INFECTION [None]
